FAERS Safety Report 6437950-0 (Version None)
Quarter: 2009Q4

REPORT INFORMATION
  Report Type: 
  Country: None (occurrence: None)
  Receive Date: 20091112
  Receipt Date: 20081112
  Transmission Date: 20100525
  Serious: No
  Sender: FDA-Public Use
  Company Number: US-ASTRAZENECA-2009UW16705

PATIENT
  Age: 66 Year
  Sex: Female

DRUGS (5)
  1. PRILOSEC OTC [Suspect]
     Dosage: 1 TABLET, 1 /DAY FOR 7 DAYS
     Route: 048
     Dates: start: 20081105, end: 20081112
  2. ANTIHYPERTENSIVES [Concomitant]
     Dosage: UNKNOWN
  3. DIURETICS [Concomitant]
     Dosage: UNKNOWN
  4. VITAMINS NOS [Concomitant]
     Dosage: UNKNOWN
  5. INFLUENZA VIRUS VACCINE            /00027001/ [Concomitant]
     Dosage: UNKNOWN

REACTIONS (2)
  - ABDOMINAL PAIN [None]
  - FREQUENT BOWEL MOVEMENTS [None]
